FAERS Safety Report 21560256 (Version 1)
Quarter: 2022Q4

REPORT INFORMATION
  Report Type: Spontaneous
  Country: GB (occurrence: GB)
  Receive Date: 20221107
  Receipt Date: 20221107
  Transmission Date: 20230112
  Serious: Yes (Other)
  Sender: FDA-Public Use
  Company Number: GB-ANIPHARMA-2022-UK-000262

PATIENT
  Age: 49 Year
  Sex: Female
  Weight: 67 kg

DRUGS (7)
  1. CANDESARTAN CILEXETIL [Suspect]
     Active Substance: CANDESARTAN CILEXETIL
     Indication: Product used for unknown indication
     Dosage: TAKE ONE ONCE DAILY
     Route: 065
     Dates: start: 20220405, end: 20221014
  2. ATENOLOL [Concomitant]
     Active Substance: ATENOLOL
     Dosage: 1 DF QD
     Route: 065
     Dates: start: 20220203, end: 20221007
  3. CITALOPRAM [Concomitant]
     Active Substance: CITALOPRAM HYDROBROMIDE
     Dosage: 1 DF QD
     Route: 065
     Dates: start: 20220218
  4. LEVOTHYROXINE [Concomitant]
     Active Substance: LEVOTHYROXINE
     Dosage: 1 DF QD
     Route: 065
     Dates: start: 20211122
  5. ESTRADIOL [Concomitant]
     Active Substance: ESTRADIOL
     Dosage: 2 PUMPS MORNING AND ONE EVENING
     Route: 065
     Dates: start: 20220203
  6. RAMIPRIL [Concomitant]
     Active Substance: RAMIPRIL
     Dosage: 1 DF QD
     Route: 065
     Dates: start: 20221014
  7. SUMATRIPTAN [Concomitant]
     Active Substance: SUMATRIPTAN
     Dosage: TAKE AS DIRECTED BY NEUROLOGIST
     Route: 065
     Dates: start: 20220716

REACTIONS (1)
  - Diarrhoea [Recovered/Resolved]

NARRATIVE: CASE EVENT DATE: 20221018
